FAERS Safety Report 6115008-8 (Version None)
Quarter: 2009Q1

REPORT INFORMATION
  Report Type: 
  Country: None (occurrence: None)
  Receive Date: 20090313
  Receipt Date: 20090305
  Transmission Date: 20090719
  Serious: Yes (Life-Threatening, Hospitalization, Other)
  Sender: FDA-Public Use
  Company Number: A0771596A

PATIENT
  Age: 32 Year
  Sex: Male

DRUGS (2)
  1. LAMICTAL [Suspect]
     Dates: start: 20081208, end: 20090109
  2. WELLBUTRIN [Concomitant]
     Route: 048

REACTIONS (13)
  - ANOREXIA [None]
  - ASTHENIA [None]
  - EOSINOPHILIA [None]
  - FACE OEDEMA [None]
  - LEUKOCYTOSIS [None]
  - LIVER DISORDER [None]
  - OEDEMA [None]
  - PROTHROMBIN TIME PROLONGED [None]
  - PRURITUS [None]
  - PYREXIA [None]
  - RASH ERYTHEMATOUS [None]
  - RENAL FAILURE [None]
  - TRANSAMINASES INCREASED [None]
